FAERS Safety Report 7459607-X (Version None)
Quarter: 2011Q2

REPORT INFORMATION
  Report Type: 
  Country: None (occurrence: None)
  Receive Date: 20110505
  Receipt Date: 20110422
  Transmission Date: 20111010
  Serious: Yes (Other)
  Sender: FDA-Public Use
  Company Number: PHHY2011JP07133

PATIENT
  Age: 57 Year
  Sex: Female

DRUGS (3)
  1. CHEMOTHERAPEUTICS NOS [Concomitant]
  2. PACLITAXEL [Concomitant]
  3. ZOMETA [Suspect]
     Indication: METASTASES TO BONE
     Dosage: 4 MG, PER ADMINISTRATION
     Route: 042

REACTIONS (2)
  - OSTEONECROSIS OF JAW [None]
  - TOOTHACHE [None]
